FAERS Safety Report 10860951 (Version 1)
Quarter: 2015Q1

REPORT INFORMATION
  Report Type: Spontaneous
  Country: US (occurrence: None)
  Receive Date: 20150218
  Receipt Date: 20150218
  Transmission Date: 20150721
  Serious: Yes (Life-Threatening)
  Sender: FDA-Public Use
  Company Number: None

PATIENT
  Age: 40 Year
  Sex: Female
  Weight: 63.5 kg

DRUGS (1)
  1. FENTANYL TRANSDERMAL SYSTEM [Suspect]
     Active Substance: FENTANYL
     Indication: DYSTONIA
     Dosage: 100MCG EVERY 72 HRS SIDE OF ABDOMEN
     Dates: start: 20141120, end: 20141128

REACTIONS (7)
  - Application site vesicles [None]
  - Application site fissure [None]
  - Impaired healing [None]
  - Application site discolouration [None]
  - Respiratory arrest [None]
  - Accidental overdose [None]
  - Product packaging issue [None]

NARRATIVE: CASE EVENT DATE: 20141120
